FAERS Safety Report 24717388 (Version 1)
Quarter: 2024Q4

REPORT INFORMATION
  Report Type: Spontaneous
  Country: US (occurrence: None)
  Receive Date: 20241209
  Receipt Date: 20241209
  Transmission Date: 20250114
  Serious: Yes (Hospitalization)
  Sender: Public
  Company Number: None

PATIENT
  Age: 78 Year
  Sex: Female

DRUGS (1)
  1. NUPLAZID [Suspect]
     Active Substance: PIMAVANSERIN TARTRATE
     Indication: Parkinson^s disease
     Dosage: 34 MG DAILY ORAL?
     Route: 048
     Dates: start: 20240924

REACTIONS (7)
  - Fall [None]
  - Feeling abnormal [None]
  - Limb injury [None]
  - Thoracic vertebral fracture [None]
  - Hallucination, visual [None]
  - Drug effect less than expected [None]
  - Dizziness [None]

NARRATIVE: CASE EVENT DATE: 20241203
